FAERS Safety Report 6557046-7 (Version None)
Quarter: 2010Q1

REPORT INFORMATION
  Report Type: 
  Country: None (occurrence: None)
  Receive Date: 20100128
  Receipt Date: 20100118
  Transmission Date: 20100710
  Serious: No
  Sender: FDA-Public Use
  Company Number: GB-MERCK-0708GBR00043

PATIENT
  Age: 26 Year
  Sex: Female

DRUGS (10)
  1. CRIXIVAN [Suspect]
     Indication: HIV INFECTION
     Route: 065
     Dates: start: 20040601, end: 20040720
  2. LAMIVUDINE + ZIDOVUDINE [Suspect]
     Indication: HIV INFECTION
     Route: 065
     Dates: start: 20040130, end: 20040601
  3. LOPINAVIR AND RITONAVIR [Suspect]
     Indication: HIV INFECTION
     Route: 064
     Dates: start: 20040601
  4. NELFINAVIR MESYLATE [Suspect]
     Indication: HIV INFECTION
     Route: 064
     Dates: start: 20040130, end: 20040601
  5. EMTRICITABINE AND TENOFOVIR DISOPROXIL FUMARATE [Suspect]
     Indication: HIV INFECTION
     Route: 064
     Dates: start: 20040601, end: 20040720
  6. TENOFOVIR DISOPROXIL FUMARATE [Suspect]
     Indication: HIV INFECTION
     Route: 064
     Dates: start: 20040606, end: 20040910
  7. FOLIC ACID [Concomitant]
     Route: 065
  8. LAMIVUDINE [Suspect]
     Indication: HIV INFECTION
     Route: 065
     Dates: start: 20040130, end: 20040601
  9. ZIDOVUDINE [Suspect]
     Indication: HIV INFECTION
     Route: 064
     Dates: start: 20040601, end: 20040720
  10. ZIDOVUDINE [Suspect]
     Route: 064
     Dates: start: 20040601, end: 20040720

REACTIONS (1)
  - DRUG EXPOSURE DURING PREGNANCY [None]
